FAERS Safety Report 7509487-9 (Version None)
Quarter: 2011Q2

REPORT INFORMATION
  Report Type: 
  Country: None (occurrence: None)
  Receive Date: 20110527
  Receipt Date: 20110517
  Transmission Date: 20111010
  Serious: Yes (Death, Hospitalization)
  Sender: FDA-Public Use
  Company Number: US-CELGENEUS-AX251-09-0042

PATIENT
  Sex: Female
  Weight: 79.5 kg

DRUGS (23)
  1. NYSTATIN [Concomitant]
     Dosage: 500,000 UNITS MOUTH THROAT
     Dates: start: 20090125
  2. PROMETHAZINE [Concomitant]
     Dosage: 25 MG PRN
     Route: 051
     Dates: start: 20090114
  3. ABRAXANE [Suspect]
     Dosage: 260 MILLIGRAM/SQ. METER
     Route: 051
  4. SODIUM CHLORIDE [Concomitant]
     Route: 051
     Dates: start: 20090125
  5. HYDROMORPHONE HCL [Concomitant]
     Dosage: 2 MG PRN
     Route: 051
     Dates: start: 20090114
  6. SODIUM CHLORIDE [Concomitant]
     Dosage: 10 ML PRNCAC
     Route: 050
     Dates: start: 20090125
  7. HYDROMORPHONE HCL [Concomitant]
     Dosage: 1 MG PRN
     Route: 051
     Dates: start: 20090127
  8. MANIFOLD [Concomitant]
     Dates: start: 20090125
  9. LIDOCAINE HYDROCHLORIDE [Concomitant]
     Dosage: 1 APPL PRN
     Dates: start: 20090114
  10. HYDROCHLOROTHIAZIDE [Concomitant]
  11. LIDOCAINE HYDROCHLORIDE [Concomitant]
     Dosage: 20 ML PRN
     Route: 051
     Dates: start: 20090114
  12. MIDAZOLAM HCL [Concomitant]
     Dosage: 1 MG PRN
     Route: 051
     Dates: start: 20090114
  13. MORPHINE [Concomitant]
     Dosage: 2 MG PRN
     Route: 050
     Dates: start: 20090114
  14. HEPARIN [Concomitant]
     Dosage: 200 UNITS PRNCAC
     Route: 051
     Dates: start: 20090125
  15. HEPARIN [Concomitant]
     Dosage: 200 UNITS PRN
     Route: 051
     Dates: start: 20090114
  16. ALUMINUM + MAGNESIUM HYDROXIDE [Concomitant]
     Dosage: 5 ML
     Route: 048
     Dates: start: 20090125
  17. LOW DOSE WARFARIN [Concomitant]
  18. HYDROMORPHONE HCL [Concomitant]
     Dosage: 1 MG PRNCAC
     Route: 051
     Dates: start: 20090125
  19. ABRAXANE [Suspect]
     Dosage: 496 MILLIGRAM
     Route: 051
     Dates: start: 20090121
  20. SODIUM CHLORIDE [Concomitant]
     Route: 051
     Dates: start: 20090127
  21. ALUMINUM + MAGNESIUM HYDROXIDE [Concomitant]
     Dosage: 10 ML PRNCAC
     Route: 048
     Dates: start: 20090125
  22. POTASSIUM CHLORIDE [Concomitant]
     Dosage: 40 MEQ PRNCAC
     Route: 051
     Dates: start: 20090125
  23. CEFTRIAXONE SODIUM [Concomitant]
     Dosage: 1000 MG PRN
     Route: 051
     Dates: start: 20090114

REACTIONS (3)
  - TOXIC EPIDERMAL NECROLYSIS [None]
  - NEUTROPENIC SEPSIS [None]
  - MUCOSAL INFLAMMATION [None]
